FAERS Safety Report 5902799-1 (Version None)
Quarter: 2008Q3

REPORT INFORMATION
  Report Type: 
  Country: None (occurrence: None)
  Receive Date: 20080930
  Receipt Date: 20080919
  Transmission Date: 20090109
  Serious: Yes (Hospitalization)
  Sender: FDA-Public Use
  Company Number: US-JNJFOC-20080905340

PATIENT
  Sex: Female
  Weight: 50.8 kg

DRUGS (4)
  1. REMICADE [Suspect]
     Route: 042
  2. REMICADE [Suspect]
     Indication: CROHN'S DISEASE
     Route: 042
  3. LOMOTIL [Concomitant]
     Indication: DIARRHOEA
  4. PREVALITE [Concomitant]
     Indication: DIARRHOEA

REACTIONS (2)
  - INTESTINAL RESECTION [None]
  - PERTUSSIS [None]
